FAERS Safety Report 5292207-9 (Version None)
Quarter: 2007Q2

REPORT INFORMATION
  Report Type: 
  Country: None (occurrence: None)
  Receive Date: 20070410
  Receipt Date: 20070409
  Transmission Date: 20071010
  Serious: Yes (Disabling)
  Sender: FDA-Public Use
  Company Number: AT-ROCHE-240398

PATIENT
  Age: 53 Year
  Sex: Female

DRUGS (2)
  1. PLACEBO [Suspect]
     Indication: MALIGNANT MELANOMA
     Route: 048
     Dates: start: 19990201, end: 20000128
  2. INTERFERON ALFA-2A [Suspect]
     Indication: MALIGNANT MELANOMA
     Route: 058
     Dates: start: 19990201, end: 20000128

REACTIONS (1)
  - ARTHRALGIA [None]
